FAERS Safety Report 17119489 (Version 1)
Quarter: 2019Q4

REPORT INFORMATION
  Report Type: Spontaneous
  Country: US (occurrence: US)
  Receive Date: 20191206
  Receipt Date: 20191206
  Transmission Date: 20200122
  Serious: Yes (Hospitalization, Other)
  Sender: FDA-Public Use
  Company Number: US-ACCORD-164092

PATIENT
  Age: 55 Year
  Sex: Male

DRUGS (3)
  1. FLUCYTOSINE. [Concomitant]
     Active Substance: FLUCYTOSINE
  2. TACROLIMUS. [Suspect]
     Active Substance: TACROLIMUS
     Indication: IMMUNOSUPPRESSANT DRUG THERAPY
  3. AMPHOTERICIN B/AMPHOTERICIN B/LIPOSOME [Concomitant]
     Active Substance: AMPHOTERICIN B

REACTIONS (2)
  - Encephalitis [Recovered/Resolved]
  - Cryptococcosis [Recovered/Resolved]
